FAERS Safety Report 15403779 (Version 2)
Quarter: 2020Q3

REPORT INFORMATION
  Report Type: Report from Study
  Country: US (occurrence: US)
  Receive Date: 20180919
  Receipt Date: 20181017
  Transmission Date: 20201104
  Serious: Yes (Death, Hospitalization)
  Sender: FDA-Public Use
  Company Number: US-ASTRAZENECA-2018SF17314

PATIENT
  Age: 12548 Day
  Sex: Female
  Weight: 105 kg

DRUGS (8)
  1. ADAVOSERTIB. [Suspect]
     Active Substance: ADAVOSERTIB
     Indication: SMALL CELL LUNG CANCER
     Route: 048
     Dates: start: 20180727
  2. OLAPARIB. [Suspect]
     Active Substance: OLAPARIB
     Indication: SMALL CELL LUNG CANCER
     Route: 048
     Dates: start: 20180727
  3. PRILOSEC [Concomitant]
     Active Substance: OMEPRAZOLE MAGNESIUM
     Route: 065
  4. ZOLOFT [Concomitant]
     Active Substance: SERTRALINE HYDROCHLORIDE
     Route: 065
     Dates: start: 20180111, end: 20180111
  5. FOLVITE [Concomitant]
     Active Substance: FOLIC ACID
     Route: 048
     Dates: start: 20180502, end: 20180502
  6. ATIVAN [Concomitant]
     Active Substance: LORAZEPAM
     Indication: ANXIETY
     Route: 065
     Dates: start: 20180328
  7. RHEUMATREX [Concomitant]
     Active Substance: METHOTREXATE SODIUM
     Route: 065
     Dates: start: 20180502
  8. DELTASONE [Concomitant]
     Active Substance: PREDNISONE
     Dosage: 4 UNITS, QD
     Route: 065
     Dates: start: 20180612

REACTIONS (1)
  - Pneumonia [Fatal]

NARRATIVE: CASE EVENT DATE: 20180909
